FAERS Safety Report 5534055-8 (Version None)
Quarter: 2007Q4

REPORT INFORMATION
  Report Type: 
  Country: None (occurrence: None)
  Receive Date: 20071129
  Receipt Date: 20071129
  Transmission Date: 20080405
  Serious: Yes (Hospitalization)
  Sender: FDA-Public Use
  Company Number: None

PATIENT
  Sex: Male
  Weight: 65 kg

DRUGS (2)
  1. TEMOZOLOMIDE [Suspect]
     Dosage: 270 MG
  2. STEROID (DEXAMETHASON) [Concomitant]

REACTIONS (3)
  - CONFUSIONAL STATE [None]
  - DISEASE PROGRESSION [None]
  - DISORIENTATION [None]
